FAERS Safety Report 12601781 (Version 1)
Quarter: 2016Q3

REPORT INFORMATION
  Report Type: Spontaneous
  Country: IT (occurrence: IT)
  Receive Date: 20160728
  Receipt Date: 20160728
  Transmission Date: 20161109
  Serious: Yes (Disabling)
  Sender: FDA-Public Use
  Company Number: PHHY2016IT102691

PATIENT
  Age: 65 Year
  Sex: Male

DRUGS (2)
  1. ZOMETA [Suspect]
     Active Substance: ZOLEDRONIC ACID
     Indication: RENAL NEOPLASM
     Dosage: 4 MG, CYCLIC
     Route: 065
     Dates: start: 20160301, end: 20160501
  2. SUNITINIB//SUNITINIB MALATE [Concomitant]
     Indication: RENAL NEOPLASM
     Dosage: 12 MG, UNK
     Route: 065

REACTIONS (2)
  - Toothache [Unknown]
  - Bone abscess [Unknown]

NARRATIVE: CASE EVENT DATE: 20160601
